FAERS Safety Report 14874892 (Version 1)
Quarter: 2018Q2

REPORT INFORMATION
  Report Type: Spontaneous
  Country: CN (occurrence: CN)
  Receive Date: 20180510
  Receipt Date: 20180510
  Transmission Date: 20180711
  Serious: Yes (Other)
  Sender: FDA-Public Use
  Company Number: CN-SA-2018SA125819

PATIENT
  Sex: Female

DRUGS (3)
  1. CLEXANE [Suspect]
     Active Substance: ENOXAPARIN SODIUM
     Indication: AZOTAEMIA
     Route: 058
     Dates: start: 20180425, end: 20180501
  2. ERYTHROPOIETIN HUMAN [Concomitant]
     Active Substance: ERYTHROPOIETIN
     Indication: ANAEMIA
     Route: 058
     Dates: start: 201604
  3. CARNITENE [Concomitant]
     Indication: CARDIAC FAILURE
     Route: 058
     Dates: start: 201604

REACTIONS (2)
  - Thrombosis [Recovered/Resolved]
  - Product quality issue [Unknown]

NARRATIVE: CASE EVENT DATE: 20180428
